FAERS Safety Report 19888512 (Version 1)
Quarter: 2021Q3

REPORT INFORMATION
  Report Type: Spontaneous
  Country: US (occurrence: US)
  Receive Date: 20210927
  Receipt Date: 20210927
  Transmission Date: 20211014
  Serious: No
  Sender: FDA-Public Use
  Company Number: US-KVK-TECH, INC-20210100008

PATIENT
  Age: 61 Year
  Sex: Male
  Weight: 26.3 kg

DRUGS (1)
  1. OXYCODONE HYDROCHLORIDE TABLETS, USP [Suspect]
     Active Substance: OXYCODONE HYDROCHLORIDE
     Indication: NEPHROLITHIASIS
     Dosage: 10 MG 3 TIMES DAILY (ONCE EVERY 8 HOURS) FOR 10 DAYS
     Route: 048
     Dates: start: 20201130, end: 20201202

REACTIONS (2)
  - Drug ineffective [Unknown]
  - Expired product administered [Unknown]

NARRATIVE: CASE EVENT DATE: 20201130
